FAERS Safety Report 10606429 (Version 2)
Quarter: 2015Q1

REPORT INFORMATION
  Report Type: Report from Study
  Country: CO (occurrence: CO)
  Receive Date: 20141125
  Receipt Date: 20150331
  Transmission Date: 20150720
  Serious: Yes (Death, Hospitalization, Disabling, Other)
  Sender: FDA-Public Use
  Company Number: CO-AMGEN-COLSL2014090520

PATIENT
  Age: 59 Year
  Sex: Female
  Weight: 50 kg

DRUGS (1)
  1. MIMPARA [Suspect]
     Active Substance: CINACALCET HYDROCHLORIDE
     Indication: HYPERPARATHYROIDISM SECONDARY
     Dosage: 30 MG, QD
     Route: 048
     Dates: start: 20140408, end: 20150307

REACTIONS (3)
  - Hypertension [Recovered/Resolved]
  - Malnutrition [Unknown]
  - Death [Fatal]

NARRATIVE: CASE EVENT DATE: 20141101
